FAERS Safety Report 14985181 (Version 2)
Quarter: 2018Q2

REPORT INFORMATION
  Report Type: Report from Study
  Country: IT (occurrence: IT)
  Receive Date: 20180607
  Receipt Date: 20180612
  Transmission Date: 20180711
  Serious: Yes (Other)
  Sender: FDA-Public Use
  Company Number: PHHY2018IT014138

PATIENT
  Age: 68 Year

DRUGS (2)
  1. SANDOSTATIN LAR DEPOT [Suspect]
     Active Substance: OCTREOTIDE ACETATE
     Indication: PRODUCT USED FOR UNKNOWN INDICATION
     Dosage: 30 MG, UNK
     Route: 065
     Dates: start: 20130130, end: 201410
  2. AFINITOR [Suspect]
     Active Substance: EVEROLIMUS
     Indication: PRODUCT USED FOR UNKNOWN INDICATION
     Dosage: 10 MG, UNK
     Route: 065
     Dates: start: 20130523, end: 201708

REACTIONS (5)
  - Pancreatic mass [Unknown]
  - Disease progression [Recovered/Resolved with Sequelae]
  - Pulmonary mass [Unknown]
  - Liver injury [Unknown]
  - Ascites [Unknown]

NARRATIVE: CASE EVENT DATE: 20170801
